FAERS Safety Report 7235481-1 (Version None)
Quarter: 2011Q1

REPORT INFORMATION
  Report Type: 
  Country: None (occurrence: None)
  Receive Date: 20110120
  Receipt Date: 20110105
  Transmission Date: 20110831
  Serious: Yes (Hospitalization)
  Sender: FDA-Public Use
  Company Number: PHHY2011JP01061

PATIENT
  Age: 36 Year
  Sex: Female

DRUGS (3)
  1. RITALIN [Suspect]
     Indication: NARCOLEPSY
     Route: 048
  2. FLUPHENAZINE [Concomitant]
     Route: 048
  3. ANTIDEPRESSANTS [Concomitant]

REACTIONS (3)
  - TENSION HEADACHE [None]
  - HEADACHE [None]
  - HEAD DISCOMFORT [None]
